FAERS Safety Report 8255058-9 (Version None)
Quarter: 2012Q1

REPORT INFORMATION
  Report Type: 
  Country: None (occurrence: None)
  Receive Date: 20120329
  Receipt Date: 20120314
  Transmission Date: 20120608
  Serious: Yes (Other)
  Sender: FDA-Public Use
  Company Number: B0790725A

PATIENT

DRUGS (2)
  1. PAZOPANIB (FORMULATION UNKNOWN) (GENERIC) (PAZOPANIB) [Suspect]
     Indication: NEOPLASM MALIGNANT
     Dosage: ORAL
     Route: 048
  2. IXABEPILONE (FORMULATION UNKNOWN) (GENERIC) (IXABEPILONE) [Suspect]
     Indication: NEOPLASM MALIGNANT
     Dosage: INTRAVENOUS
     Route: 042

REACTIONS (1)
  - TOXICITY TO VARIOUS AGENTS [None]
